FAERS Safety Report 10991953 (Version 1)
Quarter: 2015Q2

REPORT INFORMATION
  Report Type: Report from Study
  Country: US (occurrence: US)
  Receive Date: 20150406
  Receipt Date: 20150406
  Transmission Date: 20150821
  Serious: Yes (Death)
  Sender: FDA-Public Use
  Company Number: US-BAXTER-2015BAX018770

PATIENT

DRUGS (10)
  1. CYTOXAN [Suspect]
     Active Substance: CYCLOPHOSPHAMIDE
     Indication: CHRONIC LYMPHOCYTIC LEUKAEMIA RECURRENT
     Dosage: OVER AT LEAST 10-30 MIN ON DAYS 1-3 OF CYCLES
     Route: 042
  2. LUMILIXIMAB [Suspect]
     Active Substance: UNSPECIFIED INGREDIENT
     Indication: CHRONIC LYMPHOCYTIC LEUKAEMIA RECURRENT
     Dosage: OVER 4 H WITHOUT DOSE-RATE ESCALATION ON DAY 2 OF CYCLE 1
     Route: 042
  3. CYTOXAN [Suspect]
     Active Substance: CYCLOPHOSPHAMIDE
     Dosage: ON DAYS 2-4 OF CYCLE 1
     Route: 042
  4. LUMILIXIMAB [Suspect]
     Active Substance: UNSPECIFIED INGREDIENT
     Dosage: ON DAY 1 OF CYCLES 2-6 AT 500 MG/M2 IV (OVER A MINIMUM PERIOD OF 2 H WITHOUT DOSE-RATE ESCALATION)
     Route: 042
  5. FLUDARABINE [Suspect]
     Active Substance: FLUDARABINE PHOSPHATE
     Indication: CHRONIC LYMPHOCYTIC LEUKAEMIA RECURRENT
     Dosage: OVER AT LEAST 10-30 MIN ON DAYS 1-3 OF CYCLES
     Route: 042
  6. RITUXIMAB [Suspect]
     Active Substance: RITUXIMAB
     Indication: CHRONIC LYMPHOCYTIC LEUKAEMIA RECURRENT
     Dosage: OVER 4 H WITHOUT DOSE-RATE ESCALATION ON DAY 1 OF CYCLE 1
     Route: 042
  7. RITUXIMAB [Suspect]
     Active Substance: RITUXIMAB
     Dosage: 450 MG/M2 (50 MG/H DURING THE FIRST HOUR, INCREASED BY 50-MG/H INCREMENTS EVERY 30 MIN TO A MAXIMUM
     Route: 042
  8. RITUXIMAB [Suspect]
     Active Substance: RITUXIMAB
     Dosage: ON DAY 1 OF CYCLES 2-6 AT 500 MG/M2 IV (100 MG/H, INCREASE IN 100-MG/H INCREMENTS NO LESS THAN EVERY
     Route: 042
  9. LUMILIXIMAB [Suspect]
     Active Substance: UNSPECIFIED INGREDIENT
     Dosage: 450 MG/M2 (50 MG/H DURING THE FIRST HOUR, INCREASED BY 50-MG/H INCREMENTS EVERY 30 MIN TO A MAXIMUM
     Route: 042
  10. FLUDARABINE [Suspect]
     Active Substance: FLUDARABINE PHOSPHATE
     Dosage: ON DAYS 2-4 OF CYCLE 1
     Route: 042

REACTIONS (1)
  - Death [Fatal]
